FAERS Safety Report 18467978 (Version 1)
Quarter: 2020Q4

REPORT INFORMATION
  Report Type: Report from Study
  Country: GB (occurrence: GB)
  Receive Date: 20201105
  Receipt Date: 20201105
  Transmission Date: 20210114
  Serious: Yes (Life-Threatening, Other)
  Sender: FDA-Public Use
  Company Number: GB-MYLANLABS-2020M1092272

PATIENT
  Sex: Female

DRUGS (2)
  1. CAPIVASERTIB. [Suspect]
     Active Substance: CAPIVASERTIB
     Indication: BREAST CANCER
     Dosage: ORALLY TWICE A DAY FOR 4 DAYS ON FOLLOWED BY 3 DAYS OFF.
     Route: 048
  2. FULVESTRANT. [Suspect]
     Active Substance: FULVESTRANT
     Indication: BREAST CANCER
     Dosage: STANDARD DOSING
     Route: 030

REACTIONS (7)
  - Nausea [Unknown]
  - Acute kidney injury [Unknown]
  - Fatigue [Unknown]
  - Migraine [Unknown]
  - Hyperglycaemia [Unknown]
  - Bacterial infection [Unknown]
  - Abdominal distension [Unknown]
